FAERS Safety Report 5886492-X (Version None)
Quarter: 2008Q3

REPORT INFORMATION
  Report Type: 
  Country: None (occurrence: None)
  Receive Date: 20080917
  Receipt Date: 20080915
  Transmission Date: 20090109
  Serious: Yes (Life-Threatening, Hospitalization)
  Sender: FDA-Public Use
  Company Number: US-MERCK-0808USA03215

PATIENT
  Age: 50 Year
  Sex: Male

DRUGS (2)
  1. ISENTRESS [Suspect]
     Route: 048
     Dates: start: 20080101
  2. [THERAPY UNSPECIFIED] [Concomitant]
     Route: 065
     Dates: start: 20080101

REACTIONS (1)
  - SUICIDE ATTEMPT [None]
